FAERS Safety Report 6184322-2 (Version None)
Quarter: 2009Q2

REPORT INFORMATION
  Report Type: 
  Country: None (occurrence: None)
  Receive Date: 20090508
  Receipt Date: 20090505
  Transmission Date: 20091009
  Serious: Yes (Life-Threatening)
  Sender: FDA-Public Use
  Company Number: IT-AVENTIS-200912377EU

PATIENT
  Age: 76 Year
  Sex: Male

DRUGS (1)
  1. LASIX [Suspect]
     Route: 048
     Dates: start: 20090320, end: 20090402

REACTIONS (2)
  - HEPATIC NECROSIS [None]
  - HEPATOCELLULAR INJURY [None]
